FAERS Safety Report 17031251 (Version 2)
Quarter: 2019Q4

REPORT INFORMATION
  Report Type: Report from Study
  Country: US (occurrence: US)
  Receive Date: 20191114
  Receipt Date: 20191203
  Transmission Date: 20200122
  Serious: Yes (Other)
  Sender: FDA-Public Use
  Company Number: US-UCBSA-2019046803

PATIENT
  Age: 49 Year
  Sex: Female

DRUGS (2)
  1. KEPPRA XR [Suspect]
     Active Substance: LEVETIRACETAM
     Indication: PRODUCT USED FOR UNKNOWN INDICATION
     Dosage: 500 MILLIGRAM
  2. LACOSAMIDE. [Suspect]
     Active Substance: LACOSAMIDE
     Indication: PARTIAL SEIZURES
     Dosage: 100MG 1 TABLET IN THE AM AND 3 TABLETS IN THE PM, 2X/DAY (BID)
     Route: 048
     Dates: start: 2011

REACTIONS (3)
  - Off label use [Unknown]
  - Seizure [Unknown]
  - Stress [Unknown]

NARRATIVE: CASE EVENT DATE: 20191031
